FAERS Safety Report 13922983 (Version 2)
Quarter: 2017Q3

REPORT INFORMATION
  Report Type: Spontaneous
  Country: GB (occurrence: GB)
  Receive Date: 20170830
  Receipt Date: 20170906
  Transmission Date: 20171127
  Serious: Yes (Hospitalization, Other)
  Sender: FDA-Public Use
  Company Number: GB-MYLANLABS-2017M1053266

PATIENT
  Age: 27 Year
  Sex: Female

DRUGS (1)
  1. CLOZARIL [Suspect]
     Active Substance: CLOZAPINE
     Indication: SCHIZOPHRENIA
     Dosage: UNK
     Route: 048
     Dates: start: 20140307

REACTIONS (5)
  - Glucocorticoid deficiency [Unknown]
  - Eye injury [Unknown]
  - Therapy cessation [Unknown]
  - Intracranial pressure increased [Unknown]
  - Hypopituitarism [Unknown]

NARRATIVE: CASE EVENT DATE: 201708
